FAERS Safety Report 12973856 (Version 2)
Quarter: 2016Q4

REPORT INFORMATION
  Report Type: Report from Study
  Country: CA (occurrence: CA)
  Receive Date: 20161124
  Receipt Date: 20161208
  Transmission Date: 20170207
  Serious: Yes (Hospitalization)
  Sender: FDA-Public Use
  Company Number: CA-HLSUS-2016-CA-000650

PATIENT
  Age: 62 Year
  Sex: Female

DRUGS (7)
  1. PANTOPRAZOLE [Concomitant]
     Active Substance: PANTOPRAZOLE SODIUM
  2. CLOZARIL [Suspect]
     Active Substance: CLOZAPINE
     Route: 048
     Dates: start: 20141127, end: 2016
  3. MONTELUKAST [Concomitant]
     Active Substance: MONTELUKAST SODIUM
  4. VALSARTAN. [Concomitant]
     Active Substance: VALSARTAN
  5. BISOPROLOL [Concomitant]
     Active Substance: BISOPROLOL
  6. DIAZEPAM. [Concomitant]
     Active Substance: DIAZEPAM
  7. ADALAT [Concomitant]
     Active Substance: NIFEDIPINE

REACTIONS (6)
  - Respiratory failure [Unknown]
  - Atrial fibrillation [Unknown]
  - Renal tubular necrosis [Unknown]
  - Pleural effusion [Unknown]
  - Pulmonary hilum mass [Unknown]
  - Constipation [Unknown]

NARRATIVE: CASE EVENT DATE: 2016
